FAERS Safety Report 14821149 (Version 1)
Quarter: 2018Q2

REPORT INFORMATION
  Report Type: Spontaneous
  Country: FR (occurrence: FR)
  Receive Date: 20180427
  Receipt Date: 20180427
  Transmission Date: 20180711
  Serious: Yes (Other)
  Sender: FDA-Public Use
  Company Number: FR-VIIV HEALTHCARE LIMITED-FR2018069274

PATIENT
  Age: 66 Year
  Sex: Male
  Weight: 81 kg

DRUGS (2)
  1. KIVEXA [Suspect]
     Active Substance: ABACAVIR SULFATE\LAMIVUDINE
     Indication: HIV INFECTION
     Dosage: 1 DF, QD
     Route: 048
     Dates: start: 20170927, end: 20180304
  2. TIVICAY [Suspect]
     Active Substance: DOLUTEGRAVIR SODIUM
     Indication: HIV INFECTION
     Dosage: 1 DF, QD
     Route: 048
     Dates: start: 20170927, end: 20180304

REACTIONS (3)
  - Suicidal ideation [Recovering/Resolving]
  - Nervousness [Recovering/Resolving]
  - Sleep disorder [Recovering/Resolving]

NARRATIVE: CASE EVENT DATE: 201802
